FAERS Safety Report 9725391 (Version 1)
Quarter: 2013Q4

REPORT INFORMATION
  Report Type: Spontaneous
  Country: US (occurrence: None)
  Receive Date: 20131202
  Receipt Date: 20131202
  Transmission Date: 20140711
  Serious: Yes (Other)
  Sender: FDA-Public Use
  Company Number: None

PATIENT
  Age: 51 Year
  Sex: Female
  Weight: 86.18 kg

DRUGS (1)
  1. ICY HOT [Suspect]
     Indication: MUSCLE SPASMS

REACTIONS (3)
  - Application site exfoliation [None]
  - Skin discolouration [None]
  - Application site haemorrhage [None]
